FAERS Safety Report 24186407 (Version 1)
Quarter: 2024Q3

REPORT INFORMATION
  Report Type: Report from Study
  Country: US (occurrence: None)
  Receive Date: 20240808
  Receipt Date: 20240808
  Transmission Date: 20241017
  Serious: Yes (Other)
  Sender: ASTRAZENECA
  Company Number: 2022A200646

PATIENT
  Sex: Female

DRUGS (1)
  1. LYNPARZA [Suspect]
     Active Substance: OLAPARIB
     Indication: Breast cancer female
     Route: 048

REACTIONS (6)
  - Nephrolithiasis [Unknown]
  - Thrombosis [Unknown]
  - Haemoglobin decreased [Unknown]
  - Pain [Unknown]
  - Brain fog [Unknown]
  - Product dose omission issue [Unknown]
